FAERS Safety Report 6916382-2 (Version None)
Quarter: 2010Q3

REPORT INFORMATION
  Report Type: 
  Country: None (occurrence: None)
  Receive Date: 20100810
  Receipt Date: 20081107
  Transmission Date: 20110219
  Serious: No
  Sender: FDA-Public Use
  Company Number: US-PFIZER INC-2008094246

PATIENT
  Sex: Male
  Weight: 104.3 kg

DRUGS (4)
  1. LIPITOR [Suspect]
     Indication: BLOOD CHOLESTEROL INCREASED
     Dosage: ONE
     Route: 048
     Dates: end: 20080101
  2. LISDEXAMFETAMINE DIMESYLATE (VYVANSE) [Suspect]
     Indication: ATTENTION DEFICIT/HYPERACTIVITY DISORDER
     Dosage: ONE CAPSULE
     Route: 048
     Dates: start: 20080601
  3. ZOLOFT [Concomitant]
     Dates: start: 20040101
  4. LEVOXYL [Concomitant]

REACTIONS (2)
  - INSOMNIA [None]
  - PAIN IN EXTREMITY [None]
